FAERS Safety Report 24524298 (Version 2)
Quarter: 2024Q4

REPORT INFORMATION
  Report Type: Spontaneous
  Country: IT (occurrence: IT)
  Receive Date: 20241018
  Receipt Date: 20241213
  Transmission Date: 20250115
  Serious: Yes (Hospitalization, Other)
  Sender: BRISTOL-MYERS SQUIBB COMPANY
  Company Number: None

PATIENT
  Age: 73 Year
  Sex: Male

DRUGS (2)
  1. NIVOLUMAB [Suspect]
     Active Substance: NIVOLUMAB
     Indication: Product used for unknown indication
     Dosage: 3 MG/KG (240 MG TOT) EVERY 3 WEEKS
     Route: 042
     Dates: start: 20240429, end: 20240701
  2. IPILIMUMAB [Suspect]
     Active Substance: IPILIMUMAB
     Indication: Product used for unknown indication
     Dosage: 1 MG/KG (80 MG TOTAL) EVERY 3 WEEKS FOR 4 CYCLES
     Route: 042
     Dates: start: 20240429, end: 20240701

REACTIONS (2)
  - Encephalitis [Recovering/Resolving]
  - Hyperadrenocorticism [Recovering/Resolving]

NARRATIVE: CASE EVENT DATE: 20240721
